FAERS Safety Report 6576866-6 (Version None)
Quarter: 2010Q1

REPORT INFORMATION
  Report Type: 
  Country: None (occurrence: None)
  Receive Date: 20100210
  Receipt Date: 20100205
  Transmission Date: 20100710
  Serious: Yes (Other)
  Sender: FDA-Public Use
  Company Number: A0843251A

PATIENT
  Age: 20 Year
  Sex: Female

DRUGS (3)
  1. LAMICTAL [Suspect]
     Indication: BIPOLAR DISORDER
     Dosage: 25MG PER DAY
     Route: 048
     Dates: start: 20100112
  2. XANAX [Concomitant]
  3. BIRTH CONTROL PILL [Concomitant]

REACTIONS (4)
  - INFLAMMATORY BOWEL DISEASE [None]
  - PERICARDITIS [None]
  - RECTAL HAEMORRHAGE [None]
  - SPLENOMEGALY [None]
